FAERS Safety Report 9630153 (Version 1)
Quarter: 2013Q4

REPORT INFORMATION
  Report Type: Report from Study
  Country: VE (occurrence: VE)
  Receive Date: 20131017
  Receipt Date: 20131017
  Transmission Date: 20140711
  Serious: Yes (Other)
  Sender: FDA-Public Use
  Company Number: PHHY2013VE113992

PATIENT
  Sex: Female

DRUGS (1)
  1. FEMARA [Suspect]
     Indication: BREAST CANCER
     Dosage: UNK UKN, DAILY
     Route: 048
     Dates: start: 201211

REACTIONS (4)
  - Movement disorder [Recovering/Resolving]
  - Quality of life decreased [Unknown]
  - Pain [Recovering/Resolving]
  - Asthenia [Recovering/Resolving]
